FAERS Safety Report 8059055-8 (Version None)
Quarter: 2012Q1

REPORT INFORMATION
  Report Type: 
  Country: None (occurrence: None)
  Receive Date: 20120120
  Receipt Date: 20110607
  Transmission Date: 20120608
  Serious: No
  Sender: FDA-Public Use
  Company Number: US-BAUSCH-2011BL003739

PATIENT
  Sex: Female

DRUGS (3)
  1. ALAWAY [Suspect]
     Indication: MULTIPLE ALLERGIES
     Route: 047
     Dates: start: 20110604, end: 20110604
  2. ALNARIS [Concomitant]
     Indication: MULTIPLE ALLERGIES
  3. ZYRTEC-D 12 HOUR [Concomitant]
     Indication: MULTIPLE ALLERGIES

REACTIONS (2)
  - EYE PAIN [None]
  - OCULAR HYPERAEMIA [None]
